FAERS Safety Report 21910444 (Version 1)
Quarter: 2023Q1

REPORT INFORMATION
  Report Type: Spontaneous
  Country: US (occurrence: US)
  Receive Date: 20230125
  Receipt Date: 20230125
  Transmission Date: 20230418
  Serious: No
  Sender: FDA-Public Use
  Company Number: US-ALLERGAN-2210471US

PATIENT
  Age: 4 Decade
  Sex: Female

DRUGS (2)
  1. BOTOX [Suspect]
     Active Substance: ONABOTULINUMTOXINA
     Indication: Product used for unknown indication
     Dosage: UNK UNK, SINGLE
  2. BOTOX [Suspect]
     Active Substance: ONABOTULINUMTOXINA
     Dosage: UNK UNK, SINGLE

REACTIONS (6)
  - Wrong technique in product usage process [Unknown]
  - Product preparation issue [Unknown]
  - Multiple use of single-use product [Unknown]
  - Injection site pain [Unknown]
  - Drug ineffective [Unknown]
  - Drug ineffective [Unknown]
